FAERS Safety Report 9449232 (Version 1)
Quarter: 2013Q3

REPORT INFORMATION
  Report Type: Spontaneous
  Country: DE (occurrence: DE)
  Receive Date: 20130808
  Receipt Date: 20130808
  Transmission Date: 20140515
  Serious: Yes (Death, Life-Threatening)
  Sender: FDA-Public Use
  Company Number: DE-ACTAVIS-2013-14079

PATIENT
  Age: 45 Year
  Sex: Female

DRUGS (3)
  1. FLUDARABINE PHOSPHATE [Suspect]
     Indication: ACUTE MYELOID LEUKAEMIA RECURRENT
     Dosage: UNK
     Route: 042
     Dates: start: 20130609, end: 20130612
  2. ANTITHYMOCYTE IMMUNOGLOBULIN [Suspect]
     Indication: ACUTE MYELOID LEUKAEMIA RECURRENT
     Dosage: 2800 MG, DAILY
     Route: 042
     Dates: start: 20130610, end: 20130612
  3. MELPHALAN [Suspect]
     Indication: ACUTE MYELOID LEUKAEMIA RECURRENT
     Dosage: 240 MG, UNK
     Route: 042
     Dates: start: 20120604, end: 20130604

REACTIONS (2)
  - Multi-organ failure [Fatal]
  - Sepsis [Fatal]
